FAERS Safety Report 7275024 (Version 7)
Quarter: 2013Q4

REPORT INFORMATION
  Report Type: Report from Study
  Country: US (occurrence: US)
  Receive Date: 20100210
  Receipt Date: 20131210
  Transmission Date: 20140711
  Serious: Yes (Hospitalization, Other)
  Sender: FDA-Public Use
  Company Number: US-PFIZER INC-2010012553

PATIENT
  Age: 70 Year
  Sex: Male
  Weight: 102 kg

DRUGS (13)
  1. SUTENT [Suspect]
     Indication: METASTATIC RENAL CELL CARCINOMA
     Dosage: 50 MG, DAILY X28 DAYS Q 42 DAYS
     Route: 048
     Dates: start: 200903
  2. SUTENT [Suspect]
     Dosage: 37.5 MG (25 MG AND 12.5 MG), 1X/DAY
  3. SUTENT [Suspect]
     Dosage: 12.5 MG, UNK
     Dates: start: 20131118
  4. GLIPIZIDE [Concomitant]
     Indication: DIABETES MELLITUS
     Dosage: 5 MG, 2X/DAY
     Route: 048
  5. METOPROLOL TARTRATE [Concomitant]
     Indication: BLOOD PRESSURE
     Dosage: 50 MG, 2X/DAY
     Route: 048
  6. METOPROLOL TARTRATE [Concomitant]
     Indication: CARDIAC DISORDER
  7. COZAAR [Concomitant]
     Indication: BLOOD PRESSURE
     Dosage: 25 MG, 1X/DAY
     Route: 048
  8. COZAAR [Concomitant]
     Indication: HYPERTENSION
  9. ACIDOPHILUS [Concomitant]
     Dosage: UNK
  10. IRON [Concomitant]
     Dosage: UNK
  11. LEVOTHYROXINE SODIUM [Concomitant]
     Dosage: UNK
  12. VITAMIN D3 [Concomitant]
     Dosage: UNK
  13. GLIMEPIRIDE [Concomitant]
     Dosage: UNK

REACTIONS (19)
  - Neutropenic sepsis [Recovered/Resolved]
  - Gastrointestinal disorder [Recovered/Resolved]
  - Escherichia infection [Recovered/Resolved]
  - Palmar-plantar erythrodysaesthesia syndrome [Unknown]
  - Hypertension [Unknown]
  - Muscle spasms [Unknown]
  - Abdominal distension [Unknown]
  - Anaemia [Unknown]
  - White blood cell count decreased [Unknown]
  - Peripheral coldness [Unknown]
  - Rib fracture [Unknown]
  - Eyelid ptosis [Not Recovered/Not Resolved]
  - Sepsis [Unknown]
  - Abdominal pain [Unknown]
  - Dysgeusia [Unknown]
  - Glossodynia [Unknown]
  - Pain [Not Recovered/Not Resolved]
  - Nasal discomfort [Unknown]
  - Blood glucose fluctuation [Unknown]
